FAERS Safety Report 6641030-9 (Version None)
Quarter: 2010Q1

REPORT INFORMATION
  Report Type: 
  Country: None (occurrence: None)
  Receive Date: 20100318
  Receipt Date: 20100304
  Transmission Date: 20100710
  Serious: No
  Sender: FDA-Public Use
  Company Number: US-B.I. PHARMACEUTICALS,INC./RIDGEFIELD-2010-BP-02650BP

PATIENT
  Age: 60 Year
  Sex: Male

DRUGS (4)
  1. FLOMAX [Suspect]
     Indication: PROSTATITIS
     Dosage: 0.4 MG
     Route: 048
     Dates: start: 20100301
  2. CIPRO [Suspect]
     Indication: PROSTATITIS
  3. CRESTOR [Concomitant]
     Indication: BLOOD CHOLESTEROL INCREASED
  4. ASPIRIN [Concomitant]

REACTIONS (2)
  - RASH ERYTHEMATOUS [None]
  - RASH MACULAR [None]
